FAERS Safety Report 7372866-7 (Version None)
Quarter: 2011Q1

REPORT INFORMATION
  Report Type: 
  Country: None (occurrence: None)
  Receive Date: 20110314
  Receipt Date: 20110301
  Transmission Date: 20110831
  Serious: Yes (Disabling, Other)
  Sender: FDA-Public Use
  Company Number: ACO_21977_2011

PATIENT
  Age: 71 Year
  Sex: Female
  Weight: 52.2 kg

DRUGS (19)
  1. NUVIGIL [Concomitant]
  2. S-M PAIN RELEIF [Concomitant]
  3. NOVOLOG [Concomitant]
  4. VESICARE [Concomitant]
  5. BUPROPION HCL [Concomitant]
  6. PANTOPRAZOLE SODIUM [Concomitant]
  7. AMLODIPINE [Concomitant]
  8. TIZANIDINE (TIZANIDINE HYDROCHLORIDE) [Concomitant]
  9. ZETIA [Concomitant]
  10. TRAMADOL (TRAMADOL) [Concomitant]
  11. DEXTROSE 5% [Concomitant]
  12. AMPYRA [Suspect]
     Indication: GAIT DISTURBANCE
     Dosage: 10 MG, BID, ORAL
     Route: 048
     Dates: start: 20110101, end: 20110228
  13. CALCIUM 600 PLUS VITAMIN D (CALSIUM, COLECALCIFEROL) [Concomitant]
  14. LIPITOR [Concomitant]
  15. ASPIRIN [Concomitant]
  16. VITAMIN E [Concomitant]
  17. MULTI-VITAMIN [Concomitant]
  18. LISINOPRIL [Concomitant]
  19. ACTONEL [Concomitant]

REACTIONS (3)
  - ABASIA [None]
  - FALL [None]
  - MUSCULAR WEAKNESS [None]
